FAERS Safety Report 9564694 (Version 2)
Quarter: 2013Q4

REPORT INFORMATION
  Report Type: Spontaneous
  Country: US (occurrence: US)
  Receive Date: 20130930
  Receipt Date: 20131011
  Transmission Date: 20140711
  Serious: No
  Sender: FDA-Public Use
  Company Number: US-PFIZER INC-2013276418

PATIENT
  Age: 71 Year
  Sex: Female

DRUGS (2)
  1. PROTONIX [Suspect]
     Dosage: 40 MG, UNK
  2. ZOLOFT [Suspect]
     Dosage: 100 MG, UNK

REACTIONS (3)
  - Arthralgia [Unknown]
  - Spinal pain [Unknown]
  - Malaise [Unknown]
